FAERS Safety Report 5275671-0 (Version None)
Quarter: 2007Q1

REPORT INFORMATION
  Report Type: 
  Country: None (occurrence: None)
  Receive Date: 20070326
  Receipt Date: 20070320
  Transmission Date: 20070707
  Serious: Yes (Life-Threatening, Hospitalization)
  Sender: FDA-Public Use
  Company Number: 2007SE00478

PATIENT
  Age: 16661 Day
  Sex: Male
  Weight: 87 kg

DRUGS (4)
  1. BLOPRESS TABLETS 8 [Suspect]
     Indication: HYPERTENSION
     Route: 048
     Dates: start: 20050709, end: 20070121
  2. BLOPRESS TABLETS 8 [Suspect]
     Route: 048
     Dates: start: 20070122, end: 20070122
  3. ADALAT [Suspect]
     Indication: HYPERTENSION
     Route: 048
     Dates: start: 20050627, end: 20070121
  4. ADALAT [Suspect]
     Route: 048
     Dates: start: 20070122, end: 20070122

REACTIONS (3)
  - INTENTIONAL OVERDOSE [None]
  - RENAL FAILURE ACUTE [None]
  - SHOCK [None]
